FAERS Safety Report 8485385 (Version 8)
Quarter: 2012Q4

REPORT INFORMATION
  Report Type: 
  Country: US (occurrence: US)
  Receive Date: 20120330
  Receipt Date: 20120907
  Transmission Date: 20130627
  Serious: Yes (Hospitalization, Disabling, Other)
  Sender: FDA-Public Use
  Company Number: US-009507513-1203USA03342

PATIENT

DRUGS (22)
  1. FOSAMAX [Suspect]
     Indication: OSTEOPOROSIS
     Dosage: 5 mg, qd
     Route: 048
     Dates: start: 19990415
  2. FOSAMAX [Suspect]
     Dosage: 70 mg, QW
     Route: 048
     Dates: start: 20090911, end: 201107
  3. FOSAMAX [Suspect]
     Dosage: 70 mg, UNK
     Route: 048
     Dates: end: 200003
  4. FOSAMAX [Suspect]
     Indication: OSTEOPOROSIS
     Dosage: 70 mg, UNK
     Route: 048
     Dates: start: 200003, end: 200909
  5. ACTONEL [Concomitant]
     Dosage: 5 mg, UNK
     Route: 048
     Dates: start: 20001117
  6. ACTONEL [Concomitant]
     Dosage: 70 mg, UNK
     Route: 048
     Dates: start: 200303, end: 200909
  7. ACTONEL [Concomitant]
     Dosage: 35 mg, QW
     Route: 048
  8. GLUCOPHAGE [Concomitant]
     Dosage: 500-1000
     Route: 048
     Dates: start: 1991
  9. ACTOS [Concomitant]
     Dosage: 30-45
     Route: 048
     Dates: start: 1991, end: 201101
  10. SYNTHROID [Concomitant]
     Dosage: 75 ?g, qd
     Route: 048
     Dates: start: 1992
  11. LANTUS [Concomitant]
     Dosage: 15-25
     Route: 058
     Dates: start: 2008
  12. VITAMIN D (UNSPECIFIED) [Concomitant]
  13. CALCIUM (UNSPECIFIED) [Concomitant]
  14. LOTRISONE [Concomitant]
     Dates: start: 19961221
  15. FOSAMAX [Suspect]
     Dosage: 70 mg, QW
     Route: 048
     Dates: start: 20091201
  16. LIPITOR [Concomitant]
     Dosage: 40 mg, qd
     Route: 048
     Dates: end: 20110101
  17. SIMVASTATIN [Concomitant]
  18. TICLID [Concomitant]
  19. AMARYL [Concomitant]
     Dosage: 4 mg, qd
  20. PLAVIX [Concomitant]
     Indication: CEREBROVASCULAR ACCIDENT PROPHYLAXIS
     Dosage: 75 mg, qd
     Route: 048
  21. COZAAR [Concomitant]
     Indication: HYPERTENSION
     Dosage: 50 mg, qd
     Route: 048
  22. AVAPRO [Concomitant]
     Dosage: 150 mg, qd
     Route: 048

REACTIONS (70)
  - Comminuted fracture [Recovered/Resolved]
  - Emotional distress [Unknown]
  - Femur fracture [Unknown]
  - Tooth disorder [Unknown]
  - Osteoarthritis [Unknown]
  - Fracture delayed union [Recovered/Resolved]
  - Chest pain [Unknown]
  - Device failure [Unknown]
  - Osteopenia [Unknown]
  - Urinary tract infection [Unknown]
  - Ankle fracture [Unknown]
  - Foot fracture [Unknown]
  - Fibula fracture [Unknown]
  - Ankle fracture [Unknown]
  - Exostosis [Unknown]
  - Haematuria [Not Recovered/Not Resolved]
  - Cholelithiasis [Not Recovered/Not Resolved]
  - Vascular calcification [Unknown]
  - Carpal tunnel syndrome [Unknown]
  - Ingrowing nail [Not Recovered/Not Resolved]
  - Lung infiltration [Unknown]
  - Hypoaesthesia [Unknown]
  - Insomnia [Unknown]
  - Muscular weakness [Unknown]
  - Foot fracture [Unknown]
  - Transient ischaemic attack [Unknown]
  - Rib fracture [Unknown]
  - Contusion [Unknown]
  - Excoriation [Unknown]
  - Ligament sprain [Unknown]
  - Hand fracture [Unknown]
  - Coronary artery disease [Unknown]
  - Heart rate irregular [Unknown]
  - Dyspnoea [Unknown]
  - Anxiety [Unknown]
  - Respiratory distress [Recovered/Resolved]
  - Contusion [Unknown]
  - Rotator cuff syndrome [Unknown]
  - Collagen-vascular disease [Unknown]
  - Nephrolithiasis [Unknown]
  - Tendonitis [Unknown]
  - Sleep apnoea syndrome [Unknown]
  - Muscular weakness [Unknown]
  - Peripheral sensorimotor neuropathy [Not Recovered/Not Resolved]
  - Muscle strain [Unknown]
  - Spondylolisthesis [Unknown]
  - Intervertebral disc degeneration [Unknown]
  - Ligament sprain [Unknown]
  - Oropharyngeal pain [Unknown]
  - Cough [Unknown]
  - Dyspnoea [Unknown]
  - Pulmonary congestion [Unknown]
  - Anaemia [Unknown]
  - Bone lesion [Unknown]
  - Diabetic neuropathy [Unknown]
  - Fall [Unknown]
  - Neuropathy peripheral [Unknown]
  - Vascular calcification [Unknown]
  - Hypoaesthesia [Unknown]
  - Retinopathy [Unknown]
  - Depression [Unknown]
  - Musculoskeletal chest pain [Unknown]
  - Pain in extremity [Unknown]
  - Headache [Unknown]
  - Arthralgia [Unknown]
  - Oedema peripheral [Unknown]
  - Headache [Unknown]
  - Nausea [Unknown]
  - Musculoskeletal chest pain [Unknown]
  - Musculoskeletal pain [Unknown]
